FAERS Safety Report 9270019 (Version 1)
Quarter: 2013Q2

REPORT INFORMATION
  Report Type: Spontaneous
  Country: ES (occurrence: ES)
  Receive Date: 20130503
  Receipt Date: 20130503
  Transmission Date: 20140414
  Serious: Yes (Other)
  Sender: FDA-Public Use
  Company Number: ES-PFIZER INC-2013137050

PATIENT
  Age: 60 Year
  Sex: Female

DRUGS (5)
  1. SULFASALAZINE [Suspect]
     Indication: ARTHRALGIA
     Dosage: 2 G, 1X/DAY
  2. DEFLAZACORT [Concomitant]
     Dosage: 18 MG, 1X/DAY
  3. DICLOFENAC [Concomitant]
     Dosage: 50 MG, 1X/DAY
  4. OMEPRAZOLE [Concomitant]
     Dosage: 20 MG, 1X/DAY
  5. HYDROCHLOROTHIAZIDE/VALSARTAN/ [Concomitant]
     Dosage: 150/12.5 MG

REACTIONS (2)
  - Linear IgA disease [Recovered/Resolved]
  - Drug reaction with eosinophilia and systemic symptoms [Recovered/Resolved]
